FAERS Safety Report 12441909 (Version 1)
Quarter: 2016Q2

REPORT INFORMATION
  Report Type: Spontaneous
  Country: US (occurrence: None)
  Receive Date: 20160606
  Receipt Date: 20160606
  Transmission Date: 20160815
  Serious: Yes (Life-Threatening, Hospitalization)
  Sender: FDA-Public Use
  Company Number: None

PATIENT
  Age: 25 Year
  Sex: Male
  Weight: 112.3 kg

DRUGS (1)
  1. SERTRALINE [Suspect]
     Active Substance: SERTRALINE HYDROCHLORIDE
     Indication: DEPRESSION
     Dosage: MG PO
     Route: 048
     Dates: start: 20160322, end: 20160324

REACTIONS (7)
  - Urticaria [None]
  - Dyspnoea [None]
  - Headache [None]
  - Loss of consciousness [None]
  - Chest pain [None]
  - Swelling [None]
  - Anaphylactic reaction [None]

NARRATIVE: CASE EVENT DATE: 20160324
